FAERS Safety Report 5428080-5 (Version None)
Quarter: 2007Q3

REPORT INFORMATION
  Report Type: 
  Country: None (occurrence: None)
  Receive Date: 20070828
  Receipt Date: 20070816
  Transmission Date: 20080115
  Serious: Yes (Hospitalization)
  Sender: FDA-Public Use
  Company Number: PT-PFIZER INC-2007068214

PATIENT
  Sex: Male
  Weight: 57 kg

DRUGS (6)
  1. ZYVOXID TABLET [Suspect]
     Indication: CELLULITIS
     Route: 048
     Dates: start: 20070528, end: 20070530
  2. MEROPENEM TRIHYDRATE [Concomitant]
     Indication: CELLULITIS
     Dosage: DAILY DOSE:2GRAM
     Route: 042
     Dates: start: 20070523, end: 20070528
  3. OMEPRAZOLE [Concomitant]
     Indication: PROPHYLAXIS
     Dosage: DAILY DOSE:40MG
     Route: 048
  4. LOSARTAN POTASSIUM [Concomitant]
     Indication: HYPERTENSION
     Dosage: DAILY DOSE:50MG
     Route: 048
     Dates: start: 20070523, end: 20070531
  5. FUROSEMIDE [Concomitant]
     Indication: NEPHROTIC SYNDROME
     Dosage: DAILY DOSE:80MG
  6. ENOXAPARIN SODIUM [Concomitant]
     Route: 058

REACTIONS (2)
  - ERYTHEMA MULTIFORME [None]
  - PRURITUS [None]
